FAERS Safety Report 19530662 (Version 2)
Quarter: 2021Q4

REPORT INFORMATION
  Report Type: Spontaneous
  Country: JP (occurrence: JP)
  Receive Date: 20210714
  Receipt Date: 20211102
  Transmission Date: 20220303
  Serious: Yes (Other)
  Sender: FDA-Public Use
  Company Number: JP-ONO-BJ201622840

PATIENT
  Age: 44 Year
  Sex: Male
  Weight: 60.6 kg

DRUGS (18)
  1. KYPROLIS [Suspect]
     Active Substance: CARFILZOMIB
     Indication: Plasma cell myeloma
     Dosage: 33.6 MG/DAY (2016/9/23, 9/24) 45.36 MG/DAY (2016/9/30, 10/1, 10/7, 10/8)
     Route: 041
     Dates: start: 20160923
  2. KYPROLIS [Suspect]
     Active Substance: CARFILZOMIB
     Dosage: 2016/10/21, 10/22, 10/28, 10/29, 11/4, 11/5, 11/18, 11/19, 11/25, 11/26, 12/2, 12/3
     Route: 041
  3. KYPROLIS [Suspect]
     Active Substance: CARFILZOMIB
     Dosage: 2016/12/16, 12/17, 12/23, 12/24, 12/30, 12/31, 2017/4/19, 4/20, 4/26, 4/27, 5/10, 5/11, 5/17, 5/18,
     Route: 041
  4. KYPROLIS [Suspect]
     Active Substance: CARFILZOMIB
     Dosage: 56 MG/M2
     Route: 041
     Dates: start: 20170607
  5. KYPROLIS [Suspect]
     Active Substance: CARFILZOMIB
     Dosage: 70 MG/M2
     Route: 041
     Dates: start: 20200409
  6. LENADEX [Suspect]
     Active Substance: DEXAMETHASONE ACETATE
     Indication: Plasma cell myeloma
     Dosage: 40 MG/DAY (2016/9/23, 9/30, 10/7, 10/21, 10/28, 11/4), 4 MG/DAY (2016/9/24, 10/1, 10/8, 10/22, 10/29
     Route: 048
     Dates: start: 20160923
  7. LENADEX [Suspect]
     Active Substance: DEXAMETHASONE ACETATE
     Dosage: 40 MG/DAY (2016/11/18, 11/25, 12/2, 12/16, 12/23, 12/30), 4 MG/DAY (2016/11/19, 11/26, 12/3, 12/17,
     Route: 048
  8. LENADEX [Suspect]
     Active Substance: DEXAMETHASONE ACETATE
     Dosage: 40 MG/DAY (2017/4/19, 4/26, 5/10, 5/17, 5/24), 4 MG/DAY (2017/4/20, 4/27, 5/11, 5/18, 5/25)
     Route: 048
     Dates: end: 20170525
  9. LENADEX [Suspect]
     Active Substance: DEXAMETHASONE ACETATE
     Dosage: 40 MG
     Route: 048
     Dates: start: 20170607
  10. REVLIMID [Concomitant]
     Active Substance: LENALIDOMIDE
     Indication: Plasma cell myeloma
     Dosage: 2016/9/21, 9/30, 10/7
     Route: 048
     Dates: start: 20160921, end: 20161007
  11. REVLIMID [Concomitant]
     Active Substance: LENALIDOMIDE
     Dosage: UNK UNK, QW
     Route: 048
     Dates: start: 20161021, end: 20161104
  12. REVLIMID [Concomitant]
     Active Substance: LENALIDOMIDE
     Dosage: UNK UNK, QW
     Route: 048
     Dates: start: 20161118, end: 20161202
  13. REVLIMID [Concomitant]
     Active Substance: LENALIDOMIDE
     Dosage: UNK UNK, QW
     Route: 048
     Dates: start: 20161216, end: 20161230
  14. REVLIMID [Concomitant]
     Active Substance: LENALIDOMIDE
     Dosage: UNK UNK, QW
     Route: 048
     Dates: start: 20170419, end: 20170426
  15. REVLIMID [Concomitant]
     Active Substance: LENALIDOMIDE
     Dosage: UNK UNK, QW
     Route: 048
     Dates: start: 20170510, end: 20170524
  16. ACYCLOVIR [Concomitant]
     Active Substance: ACYCLOVIR
     Indication: Antiviral prophylaxis
     Dosage: UNK
     Route: 048
     Dates: start: 20160923
  17. CYCLOPHOSPHAMIDE [Concomitant]
     Active Substance: CYCLOPHOSPHAMIDE
     Dosage: UNK
     Route: 065
     Dates: start: 20170116, end: 20170117
  18. ALKERAN [Concomitant]
     Active Substance: MELPHALAN
     Dosage: UNK
     Route: 065
     Dates: start: 20170214, end: 20170215

REACTIONS (2)
  - Cardiac dysfunction [Recovering/Resolving]
  - Hypertension [Recovering/Resolving]

NARRATIVE: CASE EVENT DATE: 20161026
